FAERS Safety Report 13564117 (Version 2)
Quarter: 2017Q2

REPORT INFORMATION
  Report Type: Spontaneous
  Country: JP (occurrence: JP)
  Receive Date: 20170519
  Receipt Date: 20170531
  Transmission Date: 20170830
  Serious: Yes (Hospitalization, Other)
  Sender: FDA-Public Use
  Company Number: JP-GLAXOSMITHKLINE-JP2017JPN072610

PATIENT
  Age: 77 Year
  Sex: Male
  Weight: 59 kg

DRUGS (17)
  1. REQUIP [Suspect]
     Active Substance: ROPINIROLE HYDROCHLORIDE
     Dosage: UNK
     Route: 048
     Dates: start: 20170228, end: 20170306
  2. REQUIP [Suspect]
     Active Substance: ROPINIROLE HYDROCHLORIDE
     Dosage: UNK
     Route: 048
     Dates: start: 20170403, end: 20170416
  3. MUCOSOLVAN L [Concomitant]
     Active Substance: AMBROXOL HYDROCHLORIDE
     Indication: EMPHYSEMA
     Dosage: 45 MG, 1D
  4. REQUIP [Suspect]
     Active Substance: ROPINIROLE HYDROCHLORIDE
     Dosage: UNK
     Route: 048
     Dates: start: 20170307, end: 20170323
  5. REQUIP [Suspect]
     Active Substance: ROPINIROLE HYDROCHLORIDE
     Dosage: 12 MG, 1D
     Route: 048
     Dates: start: 20170508, end: 20170509
  6. REQUIP [Suspect]
     Active Substance: ROPINIROLE HYDROCHLORIDE
     Dosage: UNK
     Route: 048
     Dates: start: 20170324, end: 20170402
  7. DOPACOL [Concomitant]
     Active Substance: CARBIDOPA\LEVODOPA
     Indication: PARKINSON^S DISEASE
     Dosage: 300 MG, 1D
     Dates: start: 20161226
  8. REQUIP [Suspect]
     Active Substance: ROPINIROLE HYDROCHLORIDE
     Indication: PARKINSON^S DISEASE
     Dosage: UNK
     Route: 048
     Dates: start: 20170220, end: 20170227
  9. REQUIP [Suspect]
     Active Substance: ROPINIROLE HYDROCHLORIDE
     Dosage: UNK UNK, 1D
     Route: 048
     Dates: start: 20170501, end: 20170507
  10. KARY UNI [Concomitant]
     Active Substance: PIRENOXINE
     Indication: CATARACT
     Dosage: UNK, QID
     Dates: start: 20160606
  11. OXIS [Concomitant]
     Active Substance: FORMOTEROL FUMARATE
     Indication: EMPHYSEMA
     Dosage: UNK UNK, BID
     Dates: start: 20160411
  12. REQUIP [Suspect]
     Active Substance: ROPINIROLE HYDROCHLORIDE
     Dosage: 12 MG, 1D
     Route: 048
     Dates: start: 20170417, end: 20170430
  13. BAKUMONDOUTOU [Concomitant]
     Indication: EMPHYSEMA
     Dosage: 9 G, 1D
     Dates: start: 20150228
  14. HYALEIN OPHTHALMIC SOLUTION [Concomitant]
     Indication: DRY EYE
     Dosage: UNK, QID
     Dates: start: 20160606
  15. SPIRIVA RESPIMAT [Concomitant]
     Active Substance: TIOTROPIUM BROMIDE
     Indication: EMPHYSEMA
     Dosage: UNK UNK, QD
     Dates: start: 20160411
  16. AMLODIPINE [Concomitant]
     Active Substance: AMLODIPINE BESYLATE
     Indication: HYPERTENSION
     Dosage: 5 MG, 1D
     Dates: start: 20130826
  17. CARBOCISTEINE [Concomitant]
     Active Substance: CARBOCYSTEINE
     Indication: EMPHYSEMA
     Dosage: 1500 MG, 1D
     Dates: start: 20130826

REACTIONS (3)
  - Delirium [Not Recovered/Not Resolved]
  - Persecutory delusion [Not Recovered/Not Resolved]
  - Hallucination, auditory [Not Recovered/Not Resolved]

NARRATIVE: CASE EVENT DATE: 20170501
